FAERS Safety Report 16070830 (Version 1)
Quarter: 2019Q1

REPORT INFORMATION
  Report Type: Report from Study
  Country: DE (occurrence: DE)
  Receive Date: 20190314
  Receipt Date: 20190314
  Transmission Date: 20190418
  Serious: Yes (Other)
  Sender: FDA-Public Use
  Company Number: DE-EMD SERONO-9077746

PATIENT
  Age: 40 Year
  Sex: Male

DRUGS (1)
  1. REBIF [Suspect]
     Active Substance: INTERFERON BETA-1A
     Indication: MULTIPLE SCLEROSIS
     Route: 058
     Dates: start: 2014, end: 2018

REACTIONS (3)
  - Influenza like illness [Recovered/Resolved]
  - Feeling abnormal [Recovered/Resolved]
  - Infection susceptibility increased [Recovered/Resolved]

NARRATIVE: CASE EVENT DATE: 2014
